FAERS Safety Report 13257432 (Version 1)
Quarter: 2017Q1

REPORT INFORMATION
  Report Type: Spontaneous
  Country: DK (occurrence: DK)
  Receive Date: 20170221
  Receipt Date: 20170221
  Transmission Date: 20170428
  Serious: Yes (Hospitalization)
  Sender: FDA-Public Use
  Company Number: DK-PFIZER INC-2820057

PATIENT
  Age: 38 Year
  Sex: Male

DRUGS (5)
  1. ALKERAN [Suspect]
     Active Substance: MELPHALAN
     Indication: MULTIPLE SCLEROSIS
     Dosage: 50 MG, UNK
     Dates: start: 20121203
  2. SENDOXAN [Concomitant]
     Active Substance: CYCLOPHOSPHAMIDE
     Indication: MULTIPLE SCLEROSIS
     Dosage: UNK
     Dates: start: 20121019
  3. ARABINE [Suspect]
     Active Substance: CYTARABINE
     Indication: MULTIPLE SCLEROSIS
     Dosage: UNK
     Route: 042
     Dates: start: 20121130
  4. BICNU [Suspect]
     Active Substance: CARMUSTINE
     Indication: MULTIPLE SCLEROSIS
     Dosage: 100 MG, UNK
     Dates: start: 20121129
  5. ETOPOSID EBEWE [Suspect]
     Active Substance: ETOPOSIDE
     Indication: MULTIPLE SCLEROSIS
     Dosage: UNK
     Route: 042
     Dates: start: 20121130

REACTIONS (8)
  - Gastric disorder [Recovered/Resolved]
  - Slow speech [Recovered/Resolved]
  - Cognitive disorder [Not Recovered/Not Resolved]
  - Confusional state [Recovering/Resolving]
  - Infection [Recovered/Resolved]
  - Immune system disorder [Not Recovered/Not Resolved]
  - Osteoporosis [Recovered/Resolved]
  - General physical health deterioration [Recovering/Resolving]

NARRATIVE: CASE EVENT DATE: 20130101
